FAERS Safety Report 6884827-2 (Version None)
Quarter: 2010Q3

REPORT INFORMATION
  Report Type: 
  Country: None (occurrence: None)
  Receive Date: 20100729
  Receipt Date: 20070917
  Transmission Date: 20110219
  Serious: No
  Sender: FDA-Public Use
  Company Number: US-PFIZER INC-2007075224

PATIENT
  Sex: Male
  Weight: 77.11 kg

DRUGS (6)
  1. CELEBREX [Suspect]
     Indication: OSTEOARTHRITIS
     Route: 048
     Dates: start: 20070907
  2. NAPROXEN [Suspect]
     Dates: end: 20070907
  3. EFFEXOR [Concomitant]
  4. NORTRIPTYLINE [Concomitant]
  5. PRILOSEC [Concomitant]
     Indication: GASTROOESOPHAGEAL REFLUX DISEASE
  6. TEMAZEPAM [Concomitant]

REACTIONS (1)
  - ARTHRALGIA [None]
